FAERS Safety Report 17516391 (Version 1)
Quarter: 2020Q1

REPORT INFORMATION
  Report Type: Spontaneous
  Country: US (occurrence: US)
  Receive Date: 20200309
  Receipt Date: 20200309
  Transmission Date: 20200409
  Serious: No
  Sender: FDA-Public Use
  Company Number: US-PFIZER INC-2020099402

PATIENT
  Age: 35 Year
  Sex: Female
  Weight: 68.4 kg

DRUGS (6)
  1. CHANTIX [Suspect]
     Active Substance: VARENICLINE TARTRATE
     Indication: SMOKING CESSATION THERAPY
     Dosage: UNK
     Route: 048
     Dates: start: 202002
  2. SERTRALINE HCL [Interacting]
     Active Substance: SERTRALINE HYDROCHLORIDE
     Dosage: 50 MG, UNK
  3. ADDERALL [Interacting]
     Active Substance: AMPHETAMINE ASPARTATE\AMPHETAMINE SULFATE\DEXTROAMPHETAMINE SACCHARATE\DEXTROAMPHETAMINE SULFATE
     Dosage: UNK
  4. CHANTIX [Interacting]
     Active Substance: VARENICLINE TARTRATE
     Dosage: 0.5 MG, 2X/DAY (FIRST 3 DAYS ONLY ONCE) (1 IN THE MORNING AND 1 AT NIGHT WITH MEALS)
  5. ABILIFY [Interacting]
     Active Substance: ARIPIPRAZOLE
     Dosage: UNK
  6. CHANTIX [Interacting]
     Active Substance: VARENICLINE TARTRATE
     Dosage: UNK, 4X/DAY, (1 MG SO I BROKE IT IN HALF/ONCE IN THE MORNING, ONCE AT LUNCH/THEN AT NIGHT)

REACTIONS (11)
  - Aggression [Recovered/Resolved]
  - Drug interaction [Unknown]
  - Malaise [Recovered/Resolved]
  - Nausea [Unknown]
  - Vertigo [Unknown]
  - Feeling abnormal [Recovered/Resolved]
  - Irritability [Unknown]
  - Pain [Unknown]
  - Depression [Unknown]
  - Hot flush [Recovered/Resolved]
  - Anger [Recovered/Resolved]
